FAERS Safety Report 25008648 (Version 1)
Quarter: 2025Q1

REPORT INFORMATION
  Report Type: Other
  Country: KR (occurrence: KR)
  Receive Date: 20250225
  Receipt Date: 20250225
  Transmission Date: 20250408
  Serious: Yes (Death)
  Sender: ANI
  Company Number: KR-ANIPHARMA-015743

PATIENT
  Age: 64 Year
  Sex: Female

DRUGS (6)
  1. CYCLOPHOSPHAMIDE [Suspect]
     Active Substance: CYCLOPHOSPHAMIDE
     Indication: Neuroendocrine carcinoma
  2. DOXORUBICIN [Concomitant]
     Active Substance: DOXORUBICIN
     Indication: Neuroendocrine carcinoma
  3. DOCETAXEL [Concomitant]
     Active Substance: DOCETAXEL
     Indication: Neuroendocrine carcinoma
  4. ETOPOSIDE [Concomitant]
     Active Substance: ETOPOSIDE
     Indication: Neuroendocrine carcinoma
  5. CISPLATIN [Concomitant]
     Active Substance: CISPLATIN
     Indication: Neuroendocrine carcinoma
  6. IRINOTECAN [Concomitant]
     Active Substance: IRINOTECAN
     Indication: Neuroendocrine carcinoma

REACTIONS (1)
  - Disease progression [Fatal]

NARRATIVE: CASE EVENT DATE: 20190701
